FAERS Safety Report 6629570-X (Version None)
Quarter: 2010Q1

REPORT INFORMATION
  Report Type: 
  Country: None (occurrence: None)
  Receive Date: 20100310
  Receipt Date: 20100310
  Transmission Date: 20100710
  Serious: Yes (Life-Threatening, Hospitalization)
  Sender: FDA-Public Use
  Company Number: None

PATIENT
  Sex: Male
  Weight: 88.4514 kg

DRUGS (1)
  1. ADVAIR DISKUS 100/50 [Suspect]
     Indication: BRONCHITIS CHRONIC
     Dosage: ONE INHALATION TWICE DAILY MOUTH
     Route: 048
     Dates: start: 20000101, end: 20080101

REACTIONS (1)
  - PNEUMONIA [None]
